FAERS Safety Report 9076869 (Version 1)
Quarter: 2013Q1

REPORT INFORMATION
  Report Type: Report from Study
  Country: US (occurrence: US)
  Receive Date: 20130129
  Receipt Date: 20130129
  Transmission Date: 20140127
  Serious: No
  Sender: FDA-Public Use
  Company Number: US-ABBOTT-12P-163-0935363-00

PATIENT
  Age: 61 Year
  Sex: Male

DRUGS (10)
  1. HUMIRA 40 MG/0.8 ML PEN [Suspect]
     Indication: PSORIASIS
     Dates: start: 20120505
  2. HUMIRA 40 MG/0.8 ML PEN [Suspect]
     Indication: PSORIATIC ARTHROPATHY
  3. PREDNISONE [Suspect]
     Indication: JOINT STIFFNESS
     Dates: start: 20120620
  4. AMARYL [Concomitant]
     Indication: BLOOD GLUCOSE
  5. JANUVIA [Concomitant]
     Indication: PRODUCT USED FOR UNKNOWN INDICATION
  6. METFORMIN [Concomitant]
     Indication: PRODUCT USED FOR UNKNOWN INDICATION
  7. ATACAND HCT [Concomitant]
     Indication: PRODUCT USED FOR UNKNOWN INDICATION
     Dosage: 32/12.5
  8. LIPITOR [Concomitant]
     Indication: PRODUCT USED FOR UNKNOWN INDICATION
  9. THYROXIN [Concomitant]
     Indication: PRODUCT USED FOR UNKNOWN INDICATION
  10. MINOXIDIL [Concomitant]
     Indication: PRODUCT USED FOR UNKNOWN INDICATION

REACTIONS (10)
  - Coeliac disease [Unknown]
  - Injection site swelling [Recovered/Resolved]
  - Arthralgia [Unknown]
  - Joint stiffness [Unknown]
  - Bronchitis [Recovering/Resolving]
  - Dry throat [Recovering/Resolving]
  - Throat irritation [Not Recovered/Not Resolved]
  - Productive cough [Recovering/Resolving]
  - Hypopnoea [Recovering/Resolving]
  - Blood glucose increased [Recovering/Resolving]
